FAERS Safety Report 7532736-8 (Version None)
Quarter: 2011Q2

REPORT INFORMATION
  Report Type: 
  Country: None (occurrence: None)
  Receive Date: 20110608
  Receipt Date: 20110602
  Transmission Date: 20111010
  Serious: Yes (Other)
  Sender: FDA-Public Use
  Company Number: A0930078A

PATIENT
  Age: 22 Year
  Sex: Male

DRUGS (2)
  1. DILANTIN [Concomitant]
  2. LAMICTAL [Suspect]
     Route: 048
     Dates: start: 20101201

REACTIONS (2)
  - STRESS [None]
  - CONVULSION [None]
